FAERS Safety Report 8937197 (Version 1)
Quarter: 2012Q4

REPORT INFORMATION
  Report Type: Spontaneous
  Country: US (occurrence: None)
  Receive Date: 20121128
  Receipt Date: 20121128
  Transmission Date: 20130627
  Serious: Yes (Hospitalization)
  Sender: FDA-Public Use
  Company Number: None

PATIENT
  Age: 62 Year
  Sex: Female
  Weight: 58.2 kg

DRUGS (8)
  1. ASA [Suspect]
     Indication: TIA
     Dosage: CHRONIC
     Route: 048
  2. MELOXICAM [Suspect]
     Indication: OSTEOARTHRITIS
     Dosage: CHRONIC
  3. PLAVIX [Suspect]
     Indication: PERIPHERAL ARTERIAL DISEASE
     Dosage: CHRONIC
  4. PRAVACHOL [Concomitant]
  5. SYNTHROID [Concomitant]
  6. CELEXA [Concomitant]
  7. LISINOPRIL [Concomitant]
  8. PEPCID [Concomitant]

REACTIONS (3)
  - Upper gastrointestinal haemorrhage [None]
  - Duodenal ulcer [None]
  - Haemorrhagic anaemia [None]
